FAERS Safety Report 6259360-1 (Version None)
Quarter: 2009Q3

REPORT INFORMATION
  Report Type: 
  Country: None (occurrence: None)
  Receive Date: 20090706
  Receipt Date: 20090621
  Transmission Date: 20100115
  Serious: Yes (Other)
  Sender: FDA-Public Use
  Company Number: DSU-2009-01282

PATIENT
  Sex: Female

DRUGS (2)
  1. BENICAR [Suspect]
     Indication: DRUG USE FOR UNKNOWN INDICATION
     Dosage: PER ORAL
     Route: 048
     Dates: start: 20090101
  2. UNSPECIFIED MEDICATIONS [Concomitant]

REACTIONS (3)
  - COELIAC DISEASE [None]
  - DIARRHOEA [None]
  - VOMITING [None]
